FAERS Safety Report 23226420 (Version 1)
Quarter: 2023Q4

REPORT INFORMATION
  Report Type: Spontaneous
  Country: US (occurrence: None)
  Receive Date: 20231121
  Receipt Date: 20231121
  Transmission Date: 20240110
  Serious: Yes (Other)
  Sender: FDA-Public Use
  Company Number: None

PATIENT
  Sex: Male

DRUGS (2)
  1. TACROLIMUS [Suspect]
     Active Substance: TACROLIMUS
     Indication: Product used for unknown indication
     Dosage: 1 MG ORAL??TAKE 3 CAPSULES BY MOUTH IN THE MORNING AND 4 CAPSULES IN THE EVENING.?
     Route: 048
     Dates: start: 20211022
  2. MYCOPHENOLATE [Concomitant]

REACTIONS (1)
  - Renal transplant [None]
